FAERS Safety Report 8380451-3 (Version None)
Quarter: 2012Q2

REPORT INFORMATION
  Report Type: 
  Country: None (occurrence: None)
  Receive Date: 20120523
  Receipt Date: 20120510
  Transmission Date: 20120825
  Serious: Yes (Other)
  Sender: FDA-Public Use
  Company Number: US-GLAXOSMITHKLINE-A0977972A

PATIENT
  Age: 29 Year
  Sex: Male
  Weight: 71.4 kg

DRUGS (1)
  1. PROPAFENONE HYDROCHLORIDE [Suspect]
     Indication: INVESTIGATION
     Dosage: 425MG SINGLE DOSE
     Route: 048
     Dates: start: 20120503, end: 20120503

REACTIONS (1)
  - ATRIOVENTRICULAR BLOCK SECOND DEGREE [None]
